FAERS Safety Report 5386055-9 (Version None)
Quarter: 2007Q3

REPORT INFORMATION
  Report Type: 
  Country: None (occurrence: None)
  Receive Date: 20070710
  Receipt Date: 20070626
  Transmission Date: 20080115
  Serious: Yes (Hospitalization)
  Sender: FDA-Public Use
  Company Number: 015477

PATIENT
  Age: 4 Year
  Sex: Male

DRUGS (3)
  1. CLARAVIS [Suspect]
     Indication: NEUROBLASTOMA
     Dosage: SEE IMAGE
     Route: 048
     Dates: start: 20070213, end: 20070226
  2. CLARAVIS [Suspect]
     Indication: NEUROBLASTOMA
     Dosage: SEE IMAGE
     Route: 048
     Dates: start: 20070410, end: 20070417
  3. CLARAVIS [Suspect]
     Indication: NEUROBLASTOMA
     Dosage: SEE IMAGE
     Route: 048
     Dates: start: 20070427, end: 20070427

REACTIONS (4)
  - HYPERCALCAEMIA [None]
  - NAUSEA [None]
  - OSTEOLYSIS [None]
  - VOMITING [None]
